FAERS Safety Report 6274406-2 (Version None)
Quarter: 2009Q3

REPORT INFORMATION
  Report Type: 
  Country: None (occurrence: None)
  Receive Date: 20090720
  Receipt Date: 20090710
  Transmission Date: 20100115
  Serious: Yes (Life-Threatening)
  Sender: FDA-Public Use
  Company Number: JP-SANOFI-SYNTHELABO-A01200907285

PATIENT
  Age: 60 Year
  Sex: Female

DRUGS (1)
  1. ELPLAT [Suspect]
     Dosage: UNK
     Route: 041

REACTIONS (1)
  - DISSEMINATED INTRAVASCULAR COAGULATION [None]
